FAERS Safety Report 5933699-9 (Version None)
Quarter: 2008Q4

REPORT INFORMATION
  Report Type: 
  Country: None (occurrence: None)
  Receive Date: 20081029
  Receipt Date: 20081016
  Transmission Date: 20090506
  Serious: Yes (Hospitalization)
  Sender: FDA-Public Use
  Company Number: JP-SANOFI-SYNTHELABO-F01200801593

PATIENT
  Sex: Male

DRUGS (3)
  1. LONGES [Concomitant]
     Indication: HYPERTENSION
     Route: 048
     Dates: start: 20040101
  2. NORVASC [Concomitant]
     Indication: HYPERTENSION
     Dosage: 5 MG
     Route: 048
     Dates: start: 20040101
  3. CLOPIDOGREL [Suspect]
     Indication: CEREBRAL ISCHAEMIA
     Route: 048
     Dates: start: 20070907

REACTIONS (1)
  - EMBOLIC STROKE [None]
